FAERS Safety Report 6011775-2 (Version None)
Quarter: 2008Q4

REPORT INFORMATION
  Report Type: 
  Country: None (occurrence: None)
  Receive Date: 20081218
  Receipt Date: 20080430
  Transmission Date: 20090506
  Serious: No
  Sender: FDA-Public Use
  Company Number: US-ABBOTT-08P-163-0449627-00

PATIENT
  Sex: Female

DRUGS (1)
  1. MERIDIA [Suspect]
     Indication: DRUG USE FOR UNKNOWN INDICATION
     Dates: start: 20080401

REACTIONS (1)
  - DEPRESSED MOOD [None]
